FAERS Safety Report 9187478 (Version 1)
Quarter: 2013Q1

REPORT INFORMATION
  Report Type: Spontaneous
  Country: US (occurrence: US)
  Receive Date: 20130325
  Receipt Date: 20130325
  Transmission Date: 20140127
  Serious: No
  Sender: FDA-Public Use
  Company Number: US-009507513-1303USA012139

PATIENT
  Sex: Female

DRUGS (2)
  1. JANUVIA [Suspect]
     Indication: TYPE 2 DIABETES MELLITUS
     Dosage: 100 MG, UNK
     Route: 048
  2. JANUVIA [Suspect]
     Dosage: 50 MG, BID
     Route: 048

REACTIONS (2)
  - Feeling jittery [Recovered/Resolved]
  - Adrenergic syndrome [Recovered/Resolved]
